FAERS Safety Report 17245969 (Version 1)
Quarter: 2020Q1

REPORT INFORMATION
  Report Type: Spontaneous
  Country: ES (occurrence: ES)
  Receive Date: 20200108
  Receipt Date: 20200108
  Transmission Date: 20200409
  Serious: Yes (Other)
  Sender: FDA-Public Use
  Company Number: ES-TEVA-2020-ES-1164019

PATIENT
  Age: 50 Year
  Sex: Female

DRUGS (1)
  1. DICLOFENACO (745A) [Suspect]
     Active Substance: DICLOFENAC
     Indication: SCIATICA
     Dosage: 150 MG, TID
     Route: 048
     Dates: start: 20191017, end: 201910

REACTIONS (4)
  - Tongue oedema [Recovered/Resolved]
  - Bronchospasm [Recovered/Resolved]
  - Urticaria [Recovered/Resolved]
  - Hypersensitivity [Unknown]

NARRATIVE: CASE EVENT DATE: 201910
